FAERS Safety Report 18057706 (Version 2)
Quarter: 2021Q2

REPORT INFORMATION
  Report Type: Spontaneous
  Country: US (occurrence: US)
  Receive Date: 20200723
  Receipt Date: 20210629
  Transmission Date: 20210717
  Serious: No
  Sender: FDA-Public Use
  Company Number: US-TEVA-2020-US-1805788

PATIENT
  Age: 65 Year
  Sex: Female
  Weight: 102 kg

DRUGS (13)
  1. CYCLOBENZAPRINE. [Concomitant]
     Active Substance: CYCLOBENZAPRINE
  2. AJOVY [Suspect]
     Active Substance: FREMANEZUMAB-VFRM
     Indication: MIGRAINE
     Route: 058
     Dates: start: 201901
  3. LEVETIRACETAM. [Concomitant]
     Active Substance: LEVETIRACETAM
     Indication: FOCAL DYSCOGNITIVE SEIZURES
  4. FLUTICASONE PROPIONATE NASAL SPRAY [Concomitant]
     Active Substance: FLUTICASONE PROPIONATE
  5. VITAMIN D3 [Concomitant]
     Active Substance: CHOLECALCIFEROL
  6. SYNTHROID [Suspect]
     Active Substance: LEVOTHYROXINE SODIUM
     Dates: start: 201906
  7. LYRICA [Concomitant]
     Active Substance: PREGABALIN
  8. VITAMIN B [Concomitant]
     Active Substance: VITAMIN B
  9. PRAVASTATIN. [Concomitant]
     Active Substance: PRAVASTATIN
  10. COLACE [Concomitant]
     Active Substance: DOCUSATE SODIUM
  11. LAMOTRIGINE. [Concomitant]
     Active Substance: LAMOTRIGINE
  12. PROZAC [Concomitant]
     Active Substance: FLUOXETINE HYDROCHLORIDE
  13. OLOPATADINE NASAL SPRAY [Concomitant]

REACTIONS (11)
  - Headache [Recovered/Resolved]
  - Tension headache [Not Recovered/Not Resolved]
  - Head discomfort [Recovered/Resolved]
  - Pruritus [Recovered/Resolved]
  - Thyroid function test abnormal [Unknown]
  - Pain [Unknown]
  - Blood triglycerides increased [Unknown]
  - Irritable bowel syndrome [Recovered/Resolved]
  - Muscle spasms [Unknown]
  - Renal function test abnormal [Unknown]
  - Vitamin B12 decreased [Unknown]

NARRATIVE: CASE EVENT DATE: 201905
